FAERS Safety Report 8853385 (Version 9)
Quarter: 2014Q1

REPORT INFORMATION
  Report Type: Spontaneous
  Country: GB (occurrence: GB)
  Receive Date: 20121022
  Receipt Date: 20140220
  Transmission Date: 20141002
  Serious: Yes (Disabling, Other)
  Sender: FDA-Public Use
  Company Number: GB-ASTRAZENECA-2012SE47480

PATIENT
  Age: 61 Year
  Sex: Female
  Weight: 97 kg

DRUGS (14)
  1. OMEPRAZOLE [Suspect]
     Indication: GASTROOESOPHAGEAL REFLUX DISEASE
     Dosage: ?
     Route: 048
     Dates: start: 199910
  2. OMEPRAZOLE [Suspect]
     Indication: GASTROOESOPHAGEAL REFLUX DISEASE
     Dosage: ?
     Route: 048
     Dates: start: 199910
  3. OMEPRAZOLE [Suspect]
     Indication: GASTROOESOPHAGEAL REFLUX DISEASE
     Route: 048
  4. OMEPRAZOLE [Suspect]
     Indication: GASTROOESOPHAGEAL REFLUX DISEASE
     Route: 048
  5. OMEPRAZOLE [Suspect]
     Indication: GASTROOESOPHAGEAL REFLUX DISEASE
     Route: 048
     Dates: end: 201202
  6. OMEPRAZOLE [Suspect]
     Indication: GASTROOESOPHAGEAL REFLUX DISEASE
     Route: 048
     Dates: end: 201202
  7. ADCAL-D3 [Concomitant]
  8. ANTIBIOTICS [Concomitant]
  9. CETRIZINE [Concomitant]
  10. CORTICOSTEROIDS [Concomitant]
  11. SUCRALFATE [Concomitant]
  12. VITAMIN B12 [Concomitant]
  13. PANTOPRAZOLE [Concomitant]
  14. LANSOPRAZOLE [Concomitant]

REACTIONS (74)
  - Breast disorder female [Unknown]
  - Pain [Unknown]
  - Intestinal haemorrhage [Unknown]
  - Angiopathy [Unknown]
  - Visual impairment [Unknown]
  - Vitreous detachment [Unknown]
  - Haemorrhage [Unknown]
  - Breast discolouration [Not Recovered/Not Resolved]
  - Gastrooesophageal reflux disease [Unknown]
  - Cellulitis [Unknown]
  - Gastrointestinal haemorrhage [Unknown]
  - Sjogren^s syndrome [Not Recovered/Not Resolved]
  - Skin discolouration [Unknown]
  - Venous insufficiency [Recovering/Resolving]
  - Blood iron decreased [Unknown]
  - Haemorrhoids [Unknown]
  - Raynaud^s phenomenon [Unknown]
  - Tetany [Unknown]
  - Eye haemorrhage [Unknown]
  - Dry eye [Not Recovered/Not Resolved]
  - Venous insufficiency [Not Recovered/Not Resolved]
  - Dry mouth [Recovering/Resolving]
  - Arthralgia [Recovering/Resolving]
  - Muscular weakness [Unknown]
  - Headache [Unknown]
  - Bone density decreased [Unknown]
  - Osteoporosis [Unknown]
  - Breast enlargement [Unknown]
  - Tremor [Unknown]
  - Dyspnoea [Unknown]
  - Osteopenia [Unknown]
  - Vitamin D deficiency [Unknown]
  - Anaemia [Unknown]
  - Local swelling [Unknown]
  - General physical health deterioration [Unknown]
  - Blood pressure decreased [Unknown]
  - Fatigue [Unknown]
  - Incontinence [Unknown]
  - Fibromyalgia [Unknown]
  - Skin disorder [Unknown]
  - Retinopathy [Unknown]
  - Muscle spasms [Unknown]
  - Decreased appetite [Unknown]
  - Body height decreased [Unknown]
  - Eye disorder [Unknown]
  - Fall [Unknown]
  - Visual acuity reduced [Unknown]
  - Photopsia [Unknown]
  - Asthenia [Unknown]
  - Dysphonia [Unknown]
  - Weight decreased [Unknown]
  - Electrocardiogram QT interval abnormal [Unknown]
  - Breast pain [Unknown]
  - Hiatus hernia [Unknown]
  - Pharyngeal oedema [Unknown]
  - Vitamin B complex deficiency [Unknown]
  - Traumatic lung injury [Unknown]
  - Gait disturbance [Unknown]
  - Multiple fractures [Unknown]
  - Confusional state [Unknown]
  - Angioedema [Unknown]
  - Depression [Unknown]
  - Erythema [Unknown]
  - Photosensitivity reaction [Unknown]
  - Skin burning sensation [Unknown]
  - Glossodynia [Unknown]
  - Alopecia [Unknown]
  - Fluid retention [Unknown]
  - Nausea [Unknown]
  - Diarrhoea [Unknown]
  - Paraesthesia [Unknown]
  - Dizziness [Unknown]
  - Vomiting [Unknown]
  - Drug ineffective [Unknown]
